FAERS Safety Report 13401728 (Version 1)
Quarter: 2017Q2

REPORT INFORMATION
  Report Type: Spontaneous
  Country: CN (occurrence: CN)
  Receive Date: 20170404
  Receipt Date: 20170404
  Transmission Date: 20170830
  Serious: Yes (Hospitalization, Other)
  Sender: FDA-Public Use
  Company Number: CN-ASTRAZENECA-2017SE33733

PATIENT
  Age: 17178 Day
  Sex: Female

DRUGS (7)
  1. CEFACLOR. [Concomitant]
     Active Substance: CEFACLOR
     Indication: STENT PLACEMENT
     Route: 048
     Dates: start: 20160512, end: 20161130
  2. BETALOC ZOK [Suspect]
     Active Substance: METOPROLOL SUCCINATE
     Indication: STENT PLACEMENT
     Route: 048
  3. CRESTOR [Suspect]
     Active Substance: ROSUVASTATIN CALCIUM
     Indication: STENT PLACEMENT
     Dosage: UNKNOWN DOSAGE
     Route: 048
     Dates: start: 20160512, end: 20161105
  4. BRILINTA [Suspect]
     Active Substance: TICAGRELOR
     Indication: STENT PLACEMENT
     Route: 048
     Dates: start: 20160512, end: 20161105
  5. BETALOC ZOK [Suspect]
     Active Substance: METOPROLOL SUCCINATE
     Indication: STENT PLACEMENT
     Route: 048
     Dates: start: 20160512, end: 20161130
  6. IRBESARTAN. [Concomitant]
     Active Substance: IRBESARTAN
     Indication: HYPERTENSION
  7. ASPIRIN. [Concomitant]
     Active Substance: ASPIRIN
     Indication: STENT PLACEMENT

REACTIONS (9)
  - Hypochromic anaemia [Recovered/Resolved]
  - Coronary artery restenosis [Recovered/Resolved]
  - Electrocardiogram QT interval abnormal [Recovered/Resolved]
  - Asthenia [Recovered/Resolved]
  - Menorrhagia [Recovered/Resolved]
  - Blood pressure increased [Recovered/Resolved]
  - Dizziness [Recovered/Resolved]
  - Gingival bleeding [Recovered/Resolved]
  - Amaurosis fugax [Recovered/Resolved]

NARRATIVE: CASE EVENT DATE: 20160512
